FAERS Safety Report 21955743 (Version 2)
Quarter: 2023Q1

REPORT INFORMATION
  Report Type: Report from Study
  Country: US (occurrence: US)
  Receive Date: 20230206
  Receipt Date: 20230207
  Transmission Date: 20230417
  Serious: Yes (Hospitalization, Other)
  Sender: FDA-Public Use
  Company Number: US-BRISTOL-MYERS SQUIBB COMPANY-2022-157994

PATIENT
  Age: 69 Year
  Sex: Male
  Weight: 76.4 kg

DRUGS (3)
  1. IDECABTAGENE VICLEUCEL [Suspect]
     Active Substance: IDECABTAGENE VICLEUCEL
     Indication: Plasma cell myeloma
     Dosage: 417 X 10^6 T-CELLS
     Dates: start: 20221215
  2. CYCLOPHOSPHAMIDE [Concomitant]
     Active Substance: CYCLOPHOSPHAMIDE
     Indication: Plasma cell myeloma
     Dosage: RECEIVE THREE DAYS
     Dates: start: 20221210
  3. FLUDARABINE [Concomitant]
     Active Substance: FLUDARABINE PHOSPHATE
     Indication: Plasma cell myeloma
     Dosage: RECEIVE THREE DAYS
     Dates: start: 20221210

REACTIONS (1)
  - Cytokine release syndrome [Recovered/Resolved]

NARRATIVE: CASE EVENT DATE: 20221219
